FAERS Safety Report 19616436 (Version 1)
Quarter: 2021Q3

REPORT INFORMATION
  Report Type: Spontaneous
  Country: US (occurrence: US)
  Receive Date: 20210727
  Receipt Date: 20210727
  Transmission Date: 20211014
  Serious: No
  Sender: FDA-Public Use
  Company Number: US-ABBVIE-20K-163-3520391-00

PATIENT
  Age: 61 Year
  Sex: Female

DRUGS (2)
  1. SYNTHROID [Suspect]
     Active Substance: LEVOTHYROXINE SODIUM
     Route: 048
     Dates: start: 2019
  2. SYNTHROID [Suspect]
     Active Substance: LEVOTHYROXINE SODIUM
     Indication: AUTOIMMUNE THYROIDITIS
     Route: 048
     Dates: end: 2019

REACTIONS (6)
  - Diarrhoea [Recovered/Resolved]
  - Hypophagia [Not Recovered/Not Resolved]
  - Body temperature increased [Unknown]
  - Abdominal discomfort [Recovering/Resolving]
  - Thyroid function test abnormal [Unknown]
  - Product dispensing error [Unknown]

NARRATIVE: CASE EVENT DATE: 202007
